FAERS Safety Report 5917956-8 (Version None)
Quarter: 2008Q4

REPORT INFORMATION
  Report Type: 
  Country: None (occurrence: None)
  Receive Date: 20081014
  Receipt Date: 20080929
  Transmission Date: 20090506
  Serious: Yes (Disabling)
  Sender: FDA-Public Use
  Company Number: NO-GENENTECH-269326

PATIENT
  Sex: Male

DRUGS (1)
  1. MABTHERA [Suspect]
     Indication: RHEUMATOID ARTHRITIS
     Dosage: UNK
     Route: 042
     Dates: start: 20071101, end: 20071116

REACTIONS (3)
  - BLOOD GLUCOSE FLUCTUATION [None]
  - HEARING IMPAIRED [None]
  - TINNITUS [None]
